FAERS Safety Report 6576038-5 (Version None)
Quarter: 2010Q1

REPORT INFORMATION
  Report Type: 
  Country: None (occurrence: None)
  Receive Date: 20100209
  Receipt Date: 20100128
  Transmission Date: 20100710
  Serious: Yes (Hospitalization)
  Sender: FDA-Public Use
  Company Number: PHHY2010FR06166

PATIENT
  Sex: Male

DRUGS (14)
  1. NEORAL [Suspect]
     Indication: RENAL TRANSPLANT
     Dosage: 125 MG, BID
     Route: 048
     Dates: start: 20080223
  2. NEORAL [Suspect]
     Dosage: UNK
     Route: 048
  3. CELLCEPT [Concomitant]
     Dosage: 500 MG, BID
     Route: 048
  4. AMLOR [Concomitant]
     Dosage: 10 MG, QD
     Route: 048
  5. SECTRAL [Concomitant]
     Dosage: 10 MG, QD
     Route: 048
  6. OMEPRAZOLE [Concomitant]
     Dosage: 20 MG, QD
     Route: 048
  7. LASILIX [Concomitant]
     Dosage: 20 MG, QD
     Route: 048
  8. HYPERIUM [Concomitant]
     Dosage: 1 DF, BID
     Route: 048
  9. LANTUS [Concomitant]
     Dosage: 10 IU, UNK
     Route: 058
  10. LESCOL [Concomitant]
     Dosage: 20 MG, QD
     Route: 048
  11. ROVALCYTE [Concomitant]
     Dosage: 450 MG, QD
     Route: 048
  12. BACTRIM [Concomitant]
     Dosage: 1 DF, QD
  13. ALPRESS LP [Concomitant]
     Dosage: 10 MG, BID
  14. GLUCOR [Concomitant]
     Dosage: 100 MG, QD
     Route: 048

REACTIONS (6)
  - BLADDER NECK OPERATION [None]
  - CHOLECYSTECTOMY [None]
  - IMMUNOSUPPRESSANT DRUG LEVEL INCREASED [None]
  - KIDNEY TRANSPLANT REJECTION [None]
  - PANCREATITIS [None]
  - RENAL FAILURE ACUTE [None]
